FAERS Safety Report 6429068-8 (Version None)
Quarter: 2009Q4

REPORT INFORMATION
  Report Type: 
  Country: None (occurrence: None)
  Receive Date: 20091030
  Receipt Date: 20091021
  Transmission Date: 20100525
  Serious: Yes (Other)
  Sender: FDA-Public Use
  Company Number: OSCN-PR-0910L-0461

PATIENT
  Sex: 0

DRUGS (5)
  1. OMNISCAN [Suspect]
     Indication: DRUG USE FOR UNKNOWN INDICATION
     Dosage: 0.1 MMOL/KG, SINGLE DOSE, I.V., 0.2 MMOL/KG, SINGLE DOSE, I.V
     Route: 042
     Dates: start: 20020620, end: 20020620
  2. OMNISCAN [Suspect]
     Indication: DRUG USE FOR UNKNOWN INDICATION
     Dosage: 0.1 MMOL/KG, SINGLE DOSE, I.V., 0.2 MMOL/KG, SINGLE DOSE, I.V
     Route: 042
     Dates: start: 20030225, end: 20030225
  3. OMNISCAN [Suspect]
     Indication: DRUG USE FOR UNKNOWN INDICATION
     Dosage: 0.1 MMOL/KG, SINGLE DOSE, I.V., 0.2 MMOL/KG, SINGLE DOSE, I.V
     Route: 042
     Dates: start: 20060203, end: 20060203
  4. OMNISCAN [Suspect]
     Indication: DRUG USE FOR UNKNOWN INDICATION
     Dosage: 0.1 MMOL/KG, SINGLE DOSE, I.V., 0.2 MMOL/KG, SINGLE DOSE, I.V
     Route: 042
     Dates: start: 20060207, end: 20060207
  5. PROHANCE [Concomitant]

REACTIONS (1)
  - NEPHROGENIC SYSTEMIC FIBROSIS [None]
